FAERS Safety Report 11446960 (Version 1)
Quarter: 2015Q3

REPORT INFORMATION
  Report Type: Other
  Country: US (occurrence: US)
  Receive Date: 20150902
  Receipt Date: 20150902
  Transmission Date: 20151125
  Serious: Yes (Hospitalization)
  Sender: FDA-Public Use
  Company Number: US-LEHIGH_VALLEY-USA-POI0580201500068

PATIENT
  Age: 62 Year
  Sex: Male

DRUGS (18)
  1. TRAMADOL. [Interacting]
     Active Substance: TRAMADOL
     Indication: PAIN
     Dates: start: 2014, end: 2014
  2. LORAZEPAM. [Concomitant]
     Active Substance: LORAZEPAM
     Indication: ALCOHOL DETOXIFICATION
     Dates: start: 2014, end: 2014
  3. LORAZEPAM. [Concomitant]
     Active Substance: LORAZEPAM
     Dates: start: 2014, end: 2014
  4. MULTIVITAMIN [Concomitant]
     Active Substance: VITAMINS
     Dates: start: 2014, end: 2014
  5. LORAZEPAM. [Concomitant]
     Active Substance: LORAZEPAM
     Dates: start: 2014, end: 2014
  6. THIAMINE. [Concomitant]
     Active Substance: THIAMINE
     Dates: start: 2014, end: 2014
  7. POLYETHYLENE GLYCOL [Concomitant]
     Active Substance: POLYETHYLENE GLYCOLS
     Indication: CONSTIPATION
     Dosage: Q4H PRN
     Dates: start: 2014, end: 2014
  8. FOLATE [Concomitant]
     Active Substance: FOLATE SODIUM
     Dates: start: 2014, end: 2014
  9. RANITIDINE [Concomitant]
     Active Substance: RANITIDINE\RANITIDINE HYDROCHLORIDE
     Dates: start: 2014, end: 2014
  10. ACETAMINOPHEN. [Concomitant]
     Active Substance: ACETAMINOPHEN
     Indication: PAIN
     Dates: start: 2014, end: 2014
  11. OXYCODONE HCL CAPSULES [Suspect]
     Active Substance: OXYCODONE HYDROCHLORIDE
     Indication: PAIN
     Dates: start: 2014, end: 2014
  12. TRAMADOL. [Interacting]
     Active Substance: TRAMADOL
     Dates: start: 2014, end: 2014
  13. TRAZODONE [Interacting]
     Active Substance: TRAZODONE HYDROCHLORIDE
     Indication: INSOMNIA
     Dates: end: 2014
  14. DOCUSATE [Concomitant]
     Active Substance: DOCUSATE
     Dates: start: 2014, end: 2014
  15. CALCIUM VITAMIN D [Concomitant]
     Active Substance: CALCIUM\VITAMIN D
     Dosage: 250 MG/125 UNITS
     Dates: start: 2014, end: 2014
  16. HEPARIN [Concomitant]
     Active Substance: HEPARIN SODIUM
     Dosage: 5000 UNITS
     Route: 030
     Dates: start: 2014, end: 2014
  17. BUPROPION. [Interacting]
     Active Substance: BUPROPION
     Indication: DEPRESSION
     Dates: end: 2014
  18. LORAZEPAM. [Concomitant]
     Active Substance: LORAZEPAM
     Dates: start: 2014, end: 2014

REACTIONS (2)
  - Drug interaction [Recovered/Resolved]
  - Serotonin syndrome [Recovered/Resolved]

NARRATIVE: CASE EVENT DATE: 201406
